FAERS Safety Report 5530357-X (Version None)
Quarter: 2007Q4

REPORT INFORMATION
  Report Type: 
  Country: None (occurrence: None)
  Receive Date: 20071130
  Receipt Date: 20070731
  Transmission Date: 20080405
  Serious: No
  Sender: FDA-Public Use
  Company Number: A0667376A

PATIENT
  Age: 5 Year
  Sex: Male

DRUGS (1)
  1. AUGMENTIN '250' [Suspect]
     Indication: EAR INFECTION
     Dosage: 5ML TWICE PER DAY
     Route: 048
     Dates: start: 20070501, end: 20070601

REACTIONS (1)
  - DRUG INEFFECTIVE [None]
